FAERS Safety Report 24210311 (Version 2)
Quarter: 2024Q3

REPORT INFORMATION
  Report Type: Report from Study
  Country: US (occurrence: US)
  Receive Date: 20240814
  Receipt Date: 20240820
  Transmission Date: 20241016
  Serious: No
  Sender: SANDOZ
  Company Number: US-SANDOZ-SDZ2024US072582

PATIENT
  Sex: Male

DRUGS (1)
  1. HYRIMOZ [Suspect]
     Active Substance: ADALIMUMAB-ADAZ
     Indication: Ankylosing spondylitis
     Dosage: 40 MG Q2W, ONCE EVERY TWO WEEKS, STRENGTH- 40MG/0.4ML
     Route: 058

REACTIONS (2)
  - Illness [Recovered/Resolved]
  - Nasopharyngitis [Recovered/Resolved]
